FAERS Safety Report 7994875-7 (Version None)
Quarter: 2011Q4

REPORT INFORMATION
  Report Type: 
  Country: None (occurrence: None)
  Receive Date: 20111220
  Receipt Date: 20111212
  Transmission Date: 20120403
  Serious: Yes (Other)
  Sender: FDA-Public Use
  Company Number: FR-TEVA-313345ISR

PATIENT
  Age: 52 Year
  Sex: Male

DRUGS (8)
  1. ETOPOSIDE [Suspect]
     Dosage: 100 MG/M2;
  2. MESNA [Suspect]
     Indication: TESTIS CANCER
     Dosage: 1200 MG/M2;
  3. CISPLATIN [Suspect]
     Indication: TESTIS CANCER
     Dosage: 20 MG/M2;
  4. CISPLATIN [Suspect]
     Dosage: 12 MG/M2 ON DAYS 1 AND 2 AND 16 MG/M2 ON DAYS 3-5
  5. CISPLATIN [Suspect]
     Dosage: ON DAY 27
     Route: 042
  6. IFOSFAMIDE [Suspect]
     Indication: TESTIS CANCER
     Dosage: 1200 MG/M2;
  7. CISPLATIN [Suspect]
     Dosage: 8 MG/M2 ON DAYS 1 AND 2, 12 MG/M2 ON DAYS 3 AND 4 AND 16 MG/M2 ON DAY 5
  8. ETOPOSIDE [Suspect]
     Indication: TESTIS CANCER
     Dosage: 75 MG/M2;

REACTIONS (2)
  - ACUTE RESPIRATORY DISTRESS SYNDROME [None]
  - RENAL FAILURE ACUTE [None]
